FAERS Safety Report 13820915 (Version 7)
Quarter: 2019Q4

REPORT INFORMATION
  Report Type: Spontaneous
  Country: CA (occurrence: CA)
  Receive Date: 20170801
  Receipt Date: 20191220
  Transmission Date: 20200122
  Serious: Yes (Life-Threatening, Hospitalization, Other)
  Sender: FDA-Public Use
  Company Number: CA-PFIZER INC-2017330218

PATIENT
  Age: 58 Year
  Sex: Female
  Weight: 75 kg

DRUGS (16)
  1. DOCETAXEL. [Suspect]
     Active Substance: DOCETAXEL
     Dosage: 8 MILLIGRAM, BID
     Route: 042
  2. DECADRON [Suspect]
     Active Substance: DEXAMETHASONE
     Indication: PREMEDICATION
     Dosage: 48 MG, UNK
  3. COVERSYL PLUS [Suspect]
     Active Substance: INDAPAMIDE\PERINDOPRIL
     Indication: HYPERTENSION
     Dosage: UNK, QD
     Route: 048
     Dates: end: 20170220
  4. ONDANSETRON [Suspect]
     Active Substance: ONDANSETRON
     Dosage: 8 MILLIGRAM
     Route: 048
  5. DOCETAXEL. [Suspect]
     Active Substance: DOCETAXEL
     Dosage: 145 MILLIGRAM
     Route: 042
  6. TRAMADOL HCL/ACETAMINOPHEN [Concomitant]
     Active Substance: ACETAMINOPHEN\TRAMADOL HYDROCHLORIDE
     Indication: PAIN
     Dosage: UNK UNK, TID
     Route: 048
  7. PANTOPRAZOLE [Suspect]
     Active Substance: PANTOPRAZOLE
     Dosage: 40 MG, QD
     Route: 048
  8. METOCLOPRAMIDE HCL [Suspect]
     Active Substance: METOCLOPRAMIDE HYDROCHLORIDE
     Indication: ANTIEMETIC SUPPORTIVE CARE
     Dosage: 10 MG, EVERY FOUR-SIX HOURS
     Route: 048
     Dates: start: 20170214
  9. NEULASTA [Suspect]
     Active Substance: PEGFILGRASTIM
     Indication: NEUTROPENIA
     Dosage: 6 MG, 1X/DAY
     Route: 058
     Dates: start: 20170215, end: 20170215
  10. DOCETAXEL. [Suspect]
     Active Substance: DOCETAXEL
     Indication: BREAST CANCER
     Dosage: 145 MG, QD
     Route: 042
     Dates: start: 20170214, end: 20170214
  11. DECADRON [Suspect]
     Active Substance: DEXAMETHASONE
     Indication: BREAST CANCER
     Dosage: 8 MG, BID
     Route: 048
     Dates: start: 20170213, end: 20170215
  12. DEMEROL [Concomitant]
     Active Substance: MEPERIDINE HYDROCHLORIDE
     Dosage: UNK
  13. NEULASTA [Suspect]
     Active Substance: PEGFILGRASTIM
     Dosage: 6 MILLIGRAM
     Route: 058
  14. PROCYTOX [Suspect]
     Active Substance: CYCLOPHOSPHAMIDE
     Dosage: 1140 MILLIGRAM
     Route: 042
  15. PROCYTOX [Suspect]
     Active Substance: CYCLOPHOSPHAMIDE
     Indication: BREAST CANCER
     Dosage: 1140 MG, QD
     Route: 042
     Dates: start: 20170214, end: 20170214
  16. ONDANSETRON [Suspect]
     Active Substance: ONDANSETRON
     Indication: PREMEDICATION
     Dosage: 8 MG, Q8HR
     Route: 048
     Dates: start: 20170214

REACTIONS (5)
  - Blood osmolarity decreased [Recovered/Resolved]
  - Hyponatraemia [Recovered/Resolved]
  - Postictal state [Recovered/Resolved]
  - Blood osmolarity [Recovered/Resolved]
  - Hyponatraemic seizure [Recovered/Resolved]

NARRATIVE: CASE EVENT DATE: 201702
